FAERS Safety Report 7987611-1 (Version None)
Quarter: 2011Q4

REPORT INFORMATION
  Report Type: 
  Country: None (occurrence: None)
  Receive Date: 20111216
  Receipt Date: 20110503
  Transmission Date: 20120403
  Serious: Yes (Other)
  Sender: FDA-Public Use
  Company Number: US-BRISTOL-MYERS SQUIBB COMPANY-13525712

PATIENT
  Age: 60 Year
  Sex: Female
  Weight: 61 kg

DRUGS (9)
  1. CELEXA [Concomitant]
  2. ABILIFY [Suspect]
     Indication: BIPOLAR DISORDER
     Dosage: DOSE CUT IN HALF TO 5 MG TO TX SX OF SAE,STARTED IN 2007 FOR ABOUT 5 MONTHS
     Dates: start: 20060401
  3. COZAAR [Concomitant]
  4. DILTIAZEM HCL [Concomitant]
  5. ATIVAN [Concomitant]
  6. ABILIFY [Suspect]
     Indication: SCHIZOAFFECTIVE DISORDER
     Dosage: DOSE CUT IN HALF TO 5 MG TO TX SX OF SAE,STARTED IN 2007 FOR ABOUT 5 MONTHS
     Dates: start: 20060401
  7. BENZTROPINE MESYLATE [Concomitant]
  8. FEMARA [Concomitant]
  9. TAMOXIFEN [Concomitant]

REACTIONS (2)
  - HOMICIDAL IDEATION [None]
  - EXCESSIVE EYE BLINKING [None]
